FAERS Safety Report 25084566 (Version 1)
Quarter: 2025Q1

REPORT INFORMATION
  Report Type: Spontaneous
  Country: MY (occurrence: MY)
  Receive Date: 20250317
  Receipt Date: 20250317
  Transmission Date: 20250409
  Serious: Yes (Other)
  Sender: CHEPLAPHARM
  Company Number: MY-CHEPLA-2025003326

PATIENT
  Age: 12 Year
  Sex: Male

DRUGS (4)
  1. GANCICLOVIR [Suspect]
     Active Substance: GANCICLOVIR
     Indication: Cytomegalovirus infection
  2. DASATINIB [Suspect]
     Active Substance: DASATINIB
     Indication: Generalised oedema
     Dosage: DAILY (80 MG/M2/DAY)?DAILY DOSE: 70 MILLIGRAM
  3. DASATINIB [Suspect]
     Active Substance: DASATINIB
     Indication: Colitis
     Dosage: DAILY (80 MG/M2/DAY)?DAILY DOSE: 70 MILLIGRAM
  4. DASATINIB [Suspect]
     Active Substance: DASATINIB
     Indication: B-cell type acute leukaemia
     Dosage: DAILY (80 MG/M2/DAY)?DAILY DOSE: 70 MILLIGRAM

REACTIONS (2)
  - Inflammatory bowel disease [Recovering/Resolving]
  - Drug ineffective [Unknown]
